FAERS Safety Report 4498396-8 (Version None)
Quarter: 2004Q4

REPORT INFORMATION
  Report Type: 
  Country: None (occurrence: None)
  Receive Date: 20041105
  Receipt Date: 20041029
  Transmission Date: 20050328
  Serious: Yes (Disabling)
  Sender: FDA-Public Use
  Company Number: 04H-062-0279448-00

PATIENT
  Age: 51 Year
  Sex: Female
  Weight: 79.5609 kg

DRUGS (2)
  1. DIAZEPAM [Suspect]
     Indication: ANXIETY
     Dosage: 10 MG, ONCE, INJECTION
  2. DIAZEPAM [Suspect]
     Indication: CLAUSTROPHOBIA
     Dosage: 10 MG, ONCE, INJECTION

REACTIONS (7)
  - ANGIOPATHY [None]
  - FINGER AMPUTATION [None]
  - GANGRENE [None]
  - MEDICATION ERROR [None]
  - NAUSEA [None]
  - NECROSIS [None]
  - VOMITING [None]
